FAERS Safety Report 10685525 (Version 4)
Quarter: 2015Q3

REPORT INFORMATION
  Report Type: Spontaneous
  Country: US (occurrence: US)
  Receive Date: 20141231
  Receipt Date: 20150810
  Transmission Date: 20151125
  Serious: Yes (Hospitalization, Other)
  Sender: FDA-Public Use
  Company Number: US-BAYER-2014-191350

PATIENT
  Age: 35 Year
  Sex: Female
  Weight: 150 kg

DRUGS (6)
  1. METOPROLOL [Concomitant]
     Active Substance: METOPROLOL
  2. LASIX [Concomitant]
     Active Substance: FUROSEMIDE
  3. MIRENA [Suspect]
     Active Substance: LEVONORGESTREL
     Indication: MENORRHAGIA
  4. MIRENA [Suspect]
     Active Substance: LEVONORGESTREL
     Indication: CONTRACEPTION
     Dosage: 20 MCG/24HR, CONT
     Route: 015
     Dates: start: 20060126, end: 20101201
  5. DIOVAN [Concomitant]
     Active Substance: VALSARTAN
  6. NOVOLOG [Concomitant]
     Active Substance: INSULIN ASPART

REACTIONS (19)
  - Anaemia [Recovered/Resolved]
  - Cyst [Recovered/Resolved]
  - Vomiting [Recovered/Resolved]
  - Anxiety [None]
  - Pelvic inflammatory disease [None]
  - Uterine perforation [Recovered/Resolved]
  - Pelvic pain [Recovered/Resolved]
  - Depression [None]
  - Pain [Recovered/Resolved]
  - Back pain [Recovered/Resolved]
  - Scar [Recovered/Resolved]
  - Nausea [Recovered/Resolved]
  - Emotional distress [None]
  - Injury [Recovered/Resolved]
  - Infection [Recovered/Resolved]
  - Abdominal pain [Recovered/Resolved]
  - Headache [Recovered/Resolved]
  - Internal haemorrhage [Recovered/Resolved]
  - Alopecia [Recovered/Resolved]

NARRATIVE: CASE EVENT DATE: 200601
